FAERS Safety Report 8564678-3 (Version None)
Quarter: 2012Q3

REPORT INFORMATION
  Report Type: 
  Country: None (occurrence: None)
  Receive Date: 20120803
  Receipt Date: 20120720
  Transmission Date: 20120928
  Serious: Yes (Other)
  Sender: FDA-Public Use
  Company Number: AT-MYLANLABS-2012S1015055

PATIENT
  Age: 22 Year
  Sex: Female

DRUGS (1)
  1. FUROSEMIDE [Suspect]
     Dosage: 250 MG/DAY
     Route: 065

REACTIONS (10)
  - HYPONATRAEMIA [None]
  - ELECTROCARDIOGRAM QT PROLONGED [None]
  - RHABDOMYOLYSIS [None]
  - METABOLIC ALKALOSIS [None]
  - HYPOKALAEMIA [None]
  - RENAL FAILURE [None]
  - ELECTROCARDIOGRAM ST SEGMENT ABNORMAL [None]
  - OFF LABEL USE [None]
  - VOMITING [None]
  - DIARRHOEA [None]
